FAERS Safety Report 8538482-6 (Version None)
Quarter: 2012Q3

REPORT INFORMATION
  Report Type: 
  Country: None (occurrence: None)
  Receive Date: 20120726
  Receipt Date: 20120622
  Transmission Date: 20120928
  Serious: Yes (Other)
  Sender: FDA-Public Use
  Company Number: US-JNJCP-30000113862

PATIENT
  Age: 26 Year
  Sex: Female
  Weight: 69 kg

DRUGS (4)
  1. C+C ADVANTAGE ACNE SPOT TREATMENT USA CCADTAUS [Suspect]
     Indication: ACNE
     Dosage: PEA SIZE AMOUNT, TWICE A DAY
     Route: 061
     Dates: start: 20120618, end: 20120618
  2. C+C MORNING BURST DETOXING FACIAL SCRUB USA CCMBSXUS [Suspect]
     Indication: ACNE
     Dosage: PEA SIZE AMOUNT, TWICE A DAY
     Route: 061
     Dates: start: 20120618, end: 20120618
  3. CLEAN AND CLEAR MORNING BURST FACIAL SCRUB [Suspect]
     Indication: ACNE
     Dosage: PEA SIZE AMOUNT, TWICE A DAY
     Route: 061
     Dates: start: 20120618, end: 20120618
  4. NONE [Concomitant]

REACTIONS (3)
  - APPLICATION SITE DRYNESS [None]
  - APPLICATION SITE RASH [None]
  - ACNE COSMETICA [None]
